FAERS Safety Report 10435088 (Version 1)
Quarter: 2014Q3

REPORT INFORMATION
  Report Type: Spontaneous
  Country: US (occurrence: None)
  Receive Date: 20140815
  Receipt Date: 20140815
  Transmission Date: 20150326
  Serious: No
  Sender: FDA-Public Use
  Company Number: 2014TUS003224

PATIENT
  Age: 43 Year
  Sex: Female
  Weight: 91.6 kg

DRUGS (5)
  1. BRINTELLIX [Suspect]
     Active Substance: VORTIOXETINE HYDROBROMIDE
     Indication: MAJOR DEPRESSION
     Route: 048
     Dates: start: 20140418, end: 20140419
  2. AMBIEN [Concomitant]
     Active Substance: ZOLPIDEM TARTRATE
  3. BENZODIAZEPINE DERIVATIVES [Concomitant]
     Active Substance: BENZODIAZEPINE
  4. PRAZOSIN [Concomitant]
     Active Substance: PRAZOSIN
  5. EFFEXOR XR (VENLAFAXINE HYDROCHLORIDE) [Concomitant]

REACTIONS (6)
  - Abnormal dreams [None]
  - Vomiting [None]
  - Adverse reaction [None]
  - Nausea [None]
  - Elevated mood [None]
  - Diarrhoea [None]

NARRATIVE: CASE EVENT DATE: 20140418
